FAERS Safety Report 9045491 (Version 1)
Quarter: 2013Q1

REPORT INFORMATION
  Report Type: Report from Study
  Country: US (occurrence: US)
  Receive Date: 20130131
  Receipt Date: 20130131
  Transmission Date: 20140127
  Serious: No
  Sender: FDA-Public Use
  Company Number: US-ABBOTT-12P-163-1000565-00

PATIENT
  Age: 55 Year
  Sex: Male

DRUGS (6)
  1. HUMIRA [Suspect]
     Indication: COLITIS ULCERATIVE
     Dates: start: 20120824
  2. SYNTHYROID [Concomitant]
     Indication: HYPOTHYROIDISM
     Dosage: 0.175MG DAILY
     Route: 048
  3. DOXAZOSIN [Concomitant]
     Indication: PROSTATOMEGALY
     Dosage: 8MG DAILY
     Route: 048
  4. CELEXA [Concomitant]
     Indication: DEPRESSION
     Dosage: 40MG DAILY
     Route: 048
  5. BENTYL [Concomitant]
     Indication: IRRITABLE BOWEL SYNDROME
     Dosage: 20MG
  6. CENTRUM SILVER [Concomitant]
     Indication: VITAMIN SUPPLEMENTATION
     Dosage: DAILY
     Route: 048

REACTIONS (2)
  - Thyroid therapy [Unknown]
  - Injection site pain [Recovered/Resolved]
